FAERS Safety Report 5710807-6 (Version None)
Quarter: 2008Q2

REPORT INFORMATION
  Report Type: 
  Country: None (occurrence: None)
  Receive Date: 20080415
  Receipt Date: 20080401
  Transmission Date: 20081010
  Serious: Yes (Death, Other)
  Sender: FDA-Public Use
  Company Number: A-JP2008-19769

PATIENT
  Age: 71 Year
  Sex: Male
  Weight: 64 kg

DRUGS (9)
  1. TRACLEER [Suspect]
     Indication: PULMONARY HYPERTENSION
     Dosage: 62.5 MG, BID, ORAL
     Route: 048
     Dates: start: 20070123, end: 20070126
  2. WARFARIN SODIUM [Concomitant]
  3. NICORANDIL (NICORANDIL) [Concomitant]
  4. ISOSORBIDE MONONITRATE [Concomitant]
  5. ASPIRIN (ACETYLSLICYLIC ACID) [Concomitant]
  6. IMIDAPRIL HYDROCHLORIDE (IMIDAPRIL HYDROCHLORIDE) [Concomitant]
  7. FUROSEMIDE [Concomitant]
  8. ALLOPURINOL [Concomitant]
  9. MAGNESIUM OXIDE (MAGNESIUM OXIDE) [Concomitant]

REACTIONS (11)
  - ALANINE AMINOTRANSFERASE INCREASED [None]
  - ASPARTATE AMINOTRANSFERASE INCREASED [None]
  - BLOOD ALKALINE PHOSPHATASE INCREASED [None]
  - CONDITION AGGRAVATED [None]
  - CYANOSIS [None]
  - GAMMA-GLUTAMYLTRANSFERASE INCREASED [None]
  - LIVER FUNCTION TEST ABNORMAL [None]
  - LOSS OF CONSCIOUSNESS [None]
  - PULMONARY HYPERTENSION [None]
  - PULSE ABSENT [None]
  - RESPIRATORY ARREST [None]
